FAERS Safety Report 19459456 (Version 1)
Quarter: 2021Q2

REPORT INFORMATION
  Report Type: Spontaneous
  Country: US (occurrence: US)
  Receive Date: 20210625
  Receipt Date: 20210625
  Transmission Date: 20210717
  Serious: Yes (Life-Threatening, Hospitalization, Disabling, Other)
  Sender: FDA-Public Use
  Company Number: None

PATIENT
  Age: 38 Year
  Sex: Female
  Weight: 51.75 kg

DRUGS (1)
  1. BOTOX [Suspect]
     Active Substance: ONABOTULINUMTOXINA
     Indication: SKIN WRINKLING
     Dates: start: 20191008

REACTIONS (12)
  - Cognitive disorder [None]
  - Poisoning [None]
  - Neurotoxicity [None]
  - Palpitations [None]
  - Throat tightness [None]
  - Product use complaint [None]
  - Product label counterfeit [None]
  - Product label issue [None]
  - Blindness [None]
  - Incorrect product formulation administered [None]
  - Skin burning sensation [None]
  - Recalled product administered [None]

NARRATIVE: CASE EVENT DATE: 20191008
